FAERS Safety Report 4928570-5 (Version None)
Quarter: 2006Q1

REPORT INFORMATION
  Report Type: 
  Country: None (occurrence: None)
  Receive Date: 20060223
  Receipt Date: 20060216
  Transmission Date: 20060701
  Serious: Yes (Hospitalization)
  Sender: FDA-Public Use
  Company Number: 200610928BWH

PATIENT
  Age: 64 Year
  Sex: Male

DRUGS (1)
  1. NEXAVAR [Suspect]
     Indication: THYROID CANCER METASTATIC
     Dosage: ORAL
     Route: 048
     Dates: start: 20060121

REACTIONS (2)
  - DYSPNOEA [None]
  - PLEURAL EFFUSION [None]
